FAERS Safety Report 25614974 (Version 1)
Quarter: 2025Q3

REPORT INFORMATION
  Report Type: Spontaneous
  Country: US (occurrence: US)
  Receive Date: 20250729
  Receipt Date: 20250729
  Transmission Date: 20251020
  Serious: Yes (Other)
  Sender: BRISTOL-MYERS SQUIBB COMPANY
  Company Number: US-BRISTOL-MYERS SQUIBB COMPANY-2025-104745

PATIENT
  Age: 71 Year
  Sex: Female
  Weight: 86.18 kg

DRUGS (11)
  1. REVLIMID [Suspect]
     Active Substance: LENALIDOMIDE
     Indication: Plasma cell myeloma
     Route: 048
  2. REVLIMID [Suspect]
     Active Substance: LENALIDOMIDE
     Dates: start: 20250627
  3. REVLIMID [Suspect]
     Active Substance: LENALIDOMIDE
     Dates: start: 20250602
  4. REVLIMID [Suspect]
     Active Substance: LENALIDOMIDE
     Dates: start: 20250502
  5. REVLIMID [Suspect]
     Active Substance: LENALIDOMIDE
     Dates: start: 20250403
  6. REVLIMID [Suspect]
     Active Substance: LENALIDOMIDE
     Dates: start: 20250307
  7. REVLIMID [Suspect]
     Active Substance: LENALIDOMIDE
     Dates: start: 20250210
  8. REVLIMID [Suspect]
     Active Substance: LENALIDOMIDE
     Dates: start: 20250109
  9. REVLIMID [Suspect]
     Active Substance: LENALIDOMIDE
     Dates: start: 20241213
  10. REVLIMID [Suspect]
     Active Substance: LENALIDOMIDE
     Dates: start: 20241114
  11. REVLIMID [Suspect]
     Active Substance: LENALIDOMIDE
     Dates: start: 20241017

REACTIONS (1)
  - Therapeutic product effect incomplete [Unknown]
